FAERS Safety Report 18143982 (Version 2)
Quarter: 2020Q3

REPORT INFORMATION
  Report Type: Spontaneous
  Country: US (occurrence: US)
  Receive Date: 20200813
  Receipt Date: 20200826
  Transmission Date: 20201103
  Serious: Yes (Death, Life-Threatening, Other)
  Sender: FDA-Public Use
  Company Number: US-ACCORD-194990

PATIENT
  Age: 46 Year
  Sex: Female

DRUGS (1)
  1. METHOTREXATE. [Suspect]
     Active Substance: METHOTREXATE
     Indication: SYSTEMIC LUPUS ERYTHEMATOSUS
     Dosage: LOW DOSE

REACTIONS (5)
  - Off label use [Unknown]
  - Respiratory failure [Fatal]
  - Pancytopenia [Fatal]
  - Myelosuppression [Not Recovered/Not Resolved]
  - Pulmonary alveolar haemorrhage [Fatal]
